FAERS Safety Report 10380125 (Version 1)
Quarter: 2014Q3

REPORT INFORMATION
  Report Type: Spontaneous
  Country: US (occurrence: US)
  Receive Date: 20140813
  Receipt Date: 20140813
  Transmission Date: 20150326
  Serious: No
  Sender: FDA-Public Use
  Company Number: US-BIOGENIDEC-2014BI078720

PATIENT
  Age: 67 Year
  Sex: Female

DRUGS (8)
  1. TECFIDERA [Suspect]
     Active Substance: DIMETHYL FUMARATE
     Indication: PRODUCT USED FOR UNKNOWN INDICATION
     Route: 048
     Dates: start: 20140204, end: 20140211
  2. TRAMADOL [Concomitant]
     Active Substance: TRAMADOL
  3. PROMETHAZINE [Concomitant]
     Active Substance: PROMETHAZINE\PROMETHAZINE HYDROCHLORIDE
  4. CARBAMEZAPINE [Concomitant]
  5. BACLOFEN. [Concomitant]
     Active Substance: BACLOFEN
  6. OXYBUTYNIN [Concomitant]
     Active Substance: OXYBUTYNIN
  7. OXYCODONE [Concomitant]
     Active Substance: OXYCODONE
  8. TECFIDERA [Suspect]
     Active Substance: DIMETHYL FUMARATE
     Indication: PRODUCT USED FOR UNKNOWN INDICATION
     Route: 048
     Dates: start: 20140212

REACTIONS (1)
  - Sinus disorder [Unknown]
